FAERS Safety Report 14768521 (Version 2)
Quarter: 2019Q1

REPORT INFORMATION
  Report Type: Spontaneous
  Country: BR (occurrence: BR)
  Receive Date: 20180417
  Receipt Date: 20190117
  Transmission Date: 20190417
  Serious: Yes (Hospitalization, Other)
  Sender: FDA-Public Use
  Company Number: BR-SA-2018SA107109

PATIENT
  Sex: Female
  Weight: 95 kg

DRUGS (1)
  1. CLEXANE [Suspect]
     Active Substance: ENOXAPARIN SODIUM
     Indication: ANTIPHOSPHOLIPID SYNDROME
     Dosage: 80 MG, QD
     Route: 058
     Dates: start: 20171115, end: 20180501

REACTIONS (5)
  - Hospitalisation [Unknown]
  - Exposure during pregnancy [Unknown]
  - Product use issue [Unknown]
  - Urinary tract infection [Unknown]
  - Pre-eclampsia [Unknown]
